FAERS Safety Report 18261255 (Version 1)
Quarter: 2020Q3

REPORT INFORMATION
  Report Type: Spontaneous
  Country: JP (occurrence: JP)
  Receive Date: 20200914
  Receipt Date: 20200914
  Transmission Date: 20201103
  Serious: Yes (Hospitalization, Other)
  Sender: FDA-Public Use
  Company Number: NVSJ2020JP008892

PATIENT
  Age: 64 Year
  Sex: Male

DRUGS (1)
  1. SYMMETREL [Suspect]
     Active Substance: AMANTADINE HYDROCHLORIDE
     Indication: PARKINSONISM
     Dosage: 200 MG
     Route: 048

REACTIONS (5)
  - Toxicity to various agents [Unknown]
  - Urinary retention [Recovering/Resolving]
  - Altered state of consciousness [Recovering/Resolving]
  - Myoclonus [Recovering/Resolving]
  - Blood creatine phosphokinase increased [Recovered/Resolved]
